FAERS Safety Report 8847989 (Version 1)
Quarter: 2012Q4

REPORT INFORMATION
  Report Type: Report from Study
  Country: US (occurrence: US)
  Receive Date: 20121018
  Receipt Date: 20121018
  Transmission Date: 20130627
  Serious: Yes (Other)
  Sender: FDA-Public Use
  Company Number: US-ROCHE-1145088

PATIENT
  Age: 63 Year
  Sex: Male
  Weight: 83.08 kg

DRUGS (1)
  1. VEMURAFENIB [Suspect]
     Indication: METASTATIC MALIGNANT MELANOMA
     Route: 048
     Dates: start: 2011

REACTIONS (3)
  - Headache [Not Recovered/Not Resolved]
  - Brain tumour operation [Recovering/Resolving]
  - Pain [Not Recovered/Not Resolved]
